FAERS Safety Report 4483392-7 (Version None)
Quarter: 2004Q4

REPORT INFORMATION
  Report Type: 
  Country: None (occurrence: None)
  Receive Date: 20041020
  Receipt Date: 20041007
  Transmission Date: 20050328
  Serious: Yes (Hospitalization, Other)
  Sender: FDA-Public Use
  Company Number: HQWYE596026APR04

PATIENT
  Age: 28 Year
  Sex: Female

DRUGS (12)
  1. TRIQUILAR-21 (LEVONORGESTREL/ETHINYL ESTRADIOL, TABLET) [Suspect]
     Indication: ORAL CONTRACEPTION
     Dosage: 1 TABLET 1X PER 1 DAY, ORAL
     Route: 048
     Dates: start: 20021111, end: 20031227
  2. GASMOTIN (MOSAPRIDE CITRATE) [Concomitant]
  3. DEXCHLORPHENIRAMINE MALEATE [Concomitant]
  4. BISOLVON (BROMHEXINE HYDROCHLORIDE) [Concomitant]
  5. TANNIC ACID (TANNIC ACID) [Concomitant]
  6. THYMOL (THYMOL) [Concomitant]
  7. MENTHOL (MENTHOL) [Concomitant]
  8. GLYCEROL (GLYCEROL) [Concomitant]
  9. ETHANOL (ETHANOL) [Concomitant]
  10. PANVITAN (VITAMIN NOS) [Concomitant]
  11. STROCAIM (OXETACAINE) [Concomitant]
  12. MEFENAMIC ACID [Concomitant]

REACTIONS (7)
  - ALANINE AMINOTRANSFERASE INCREASED [None]
  - ANOREXIA [None]
  - ASPARTATE AMINOTRANSFERASE INCREASED [None]
  - HEPATOTOXICITY [None]
  - JAUNDICE [None]
  - LYMPHOCYTE STIMULATION TEST POSITIVE [None]
  - NASOPHARYNGITIS [None]
